FAERS Safety Report 4833343-8 (Version None)
Quarter: 2005Q4

REPORT INFORMATION
  Report Type: 
  Country: None (occurrence: None)
  Receive Date: 20051117
  Receipt Date: 20051104
  Transmission Date: 20060501
  Serious: Yes (Hospitalization)
  Sender: FDA-Public Use
  Company Number: 2005152630

PATIENT
  Age: 63 Year
  Sex: Male
  Weight: 115 kg

DRUGS (12)
  1. SOLU-MEDROL [Suspect]
     Indication: DYSPNOEA
     Dosage: 80 MG (DAILY), INTRAVENOUS
     Route: 042
     Dates: start: 20050920, end: 20050923
  2. PREDNISONE [Suspect]
     Indication: DYSPNOEA
     Dosage: 60 MG (DAILY), ORAL
     Route: 048
     Dates: start: 20050923, end: 20051001
  3. FLUINDIONE                 (FLUINDIONE) [Suspect]
     Indication: ILL-DEFINED DISORDER
     Dosage: 30 MG (DAILY), ORAL
     Route: 048
  4. AMIODARONE HCL [Suspect]
     Indication: ILL-DEFINED DISORDER
     Dosage: 200 MG (DAILY), ORAL
     Route: 048
  5. GLIMEPIRIDE [Concomitant]
  6. VALSARTAN [Concomitant]
  7. FUROSEMIDE [Concomitant]
  8. IPRATROPIUM BROMIDE [Concomitant]
  9. FORMOTEROL FUMARATE                  (FORMOTEROL FUMARATE) [Concomitant]
  10. .. [Concomitant]
  11. .. [Concomitant]
  12. .. [Concomitant]

REACTIONS (3)
  - DRUG INTERACTION [None]
  - INTERNATIONAL NORMALISED RATIO INCREASED [None]
  - PROTHROMBIN TIME SHORTENED [None]
